FAERS Safety Report 6451195-X (Version None)
Quarter: 2009Q4

REPORT INFORMATION
  Report Type: 
  Country: None (occurrence: None)
  Receive Date: 20091123
  Receipt Date: 20091123
  Transmission Date: 20100525
  Serious: Yes (Other)
  Sender: FDA-Public Use
  Company Number: DE-PFIZER INC-2009279449

PATIENT
  Age: 76 Year
  Sex: Male

DRUGS (1)
  1. XALATAN [Suspect]
     Dosage: UNK
     Route: 047
     Dates: start: 20090901

REACTIONS (2)
  - ANGINA PECTORIS [None]
  - HYPERTENSION [None]
